FAERS Safety Report 15361393 (Version 3)
Quarter: 2021Q4

REPORT INFORMATION
  Report Type: Spontaneous
  Country: CZ (occurrence: CZ)
  Receive Date: 20180907
  Receipt Date: 20211223
  Transmission Date: 20220303
  Serious: Yes (Life-Threatening, Other)
  Sender: FDA-Public Use
  Company Number: PHHY2018CZ092274

PATIENT
  Age: 61 Year
  Sex: Female

DRUGS (10)
  1. PREDNISONE [Suspect]
     Active Substance: PREDNISONE
     Indication: Liver transplant
     Dosage: 20 MG, UNKNOWN FREQ.
     Route: 065
  2. PREDNISONE [Suspect]
     Active Substance: PREDNISONE
     Indication: Immunosuppressant drug therapy
  3. TACROLIMUS [Suspect]
     Active Substance: TACROLIMUS
     Indication: Liver transplant
     Dosage: UNK
     Route: 065
  4. TACROLIMUS [Suspect]
     Active Substance: TACROLIMUS
     Indication: Immunosuppressant drug therapy
  5. HUMULIN R [Concomitant]
     Active Substance: INSULIN HUMAN
     Indication: Type 2 diabetes mellitus
     Dosage: 16 IU, TID (16-16-16 IU DOSES)
     Route: 065
  6. HUMULIN R [Concomitant]
     Active Substance: INSULIN HUMAN
     Dosage: UNK, UNKNOWN
     Route: 065
  7. LEVEMIR [Concomitant]
     Active Substance: INSULIN DETEMIR
     Indication: Type 2 diabetes mellitus
     Dosage: 16 IU, QD (20 UNITS) (IN THE MORNING)
     Route: 065
  8. LEVEMIR [Concomitant]
     Active Substance: INSULIN DETEMIR
     Dosage: UNK, UNKNOWN
     Route: 065
  9. INSULIN LISPRO [Suspect]
     Active Substance: INSULIN LISPRO
     Indication: Type 2 diabetes mellitus
     Dosage: 100 U/ML, UNK ((IL 100) AT 20?-20?-20 U DOSES) ((IL 200) 20-?20?-20 U)
     Route: 065
     Dates: end: 201711
  10. INSULIN LISPRO [Suspect]
     Active Substance: INSULIN LISPRO
     Dosage: (IL 200) 24-24-24 U, UNKNOWN FREQ.UNK
     Route: 065
     Dates: start: 201711

REACTIONS (8)
  - Renal failure [Recovered/Resolved]
  - Nephrotic syndrome [Recovered/Resolved]
  - Proteinuria [Recovered/Resolved]
  - Increased insulin requirement [Unknown]
  - Toxicity to various agents [Unknown]
  - Weight increased [Unknown]
  - Hypoglycaemia [Unknown]
  - Liver transplant rejection [Unknown]

NARRATIVE: CASE EVENT DATE: 20130101
